FAERS Safety Report 18681035 (Version 1)
Quarter: 2020Q4

REPORT INFORMATION
  Report Type: Spontaneous
  Country: US (occurrence: US)
  Receive Date: 20201229
  Receipt Date: 20201229
  Transmission Date: 20210114
  Serious: Yes (Other)
  Sender: FDA-Public Use
  Company Number: US-PURDUE PHARMA-USA-2020-0192630

PATIENT

DRUGS (1)
  1. OXYCODONE HYDROCHLORIDE (SIMILAR TO NDA 22-272) [Suspect]
     Active Substance: OXYCODONE HYDROCHLORIDE
     Indication: PRODUCT USED FOR UNKNOWN INDICATION
     Dosage: 180+ TABLETS A MONTH
     Route: 048
     Dates: start: 2002, end: 2019

REACTIONS (8)
  - Neoplasm malignant [Unknown]
  - Pancreatic disorder [Unknown]
  - Amnesia [Unknown]
  - Fatigue [Unknown]
  - Hypertension [Unknown]
  - Bowel movement irregularity [Unknown]
  - Varicose vein [Unknown]
  - Liver injury [Unknown]
